FAERS Safety Report 10061567 (Version 1)
Quarter: 2014Q2

REPORT INFORMATION
  Report Type: Spontaneous
  Country: US (occurrence: None)
  Receive Date: 20140404
  Receipt Date: 20140404
  Transmission Date: 20141212
  Serious: Yes (Other)
  Sender: FDA-Public Use
  Company Number: None

PATIENT
  Age: 86 Year
  Sex: Female
  Weight: 45.36 kg

DRUGS (6)
  1. CLINDAMYCIN [Suspect]
     Route: 048
     Dates: start: 20131219, end: 20131221
  2. SYNTHROID [Concomitant]
  3. QUINAPRIL [Concomitant]
  4. RESTASIS [Concomitant]
  5. PACEMAKER [Concomitant]
  6. VITAMIN D [Concomitant]

REACTIONS (3)
  - Feeling abnormal [None]
  - Muscle tightness [None]
  - Feeling abnormal [None]
